FAERS Safety Report 7042501-6 (Version None)
Quarter: 2010Q4

REPORT INFORMATION
  Report Type: 
  Country: None (occurrence: None)
  Receive Date: 20101013
  Receipt Date: 20090827
  Transmission Date: 20110411
  Serious: No
  Sender: FDA-Public Use
  Company Number: US-ASTRAZENECA-2009SE10432

PATIENT
  Sex: Female
  Weight: 55.8 kg

DRUGS (14)
  1. SYMBICORT [Suspect]
     Indication: CHRONIC OBSTRUCTIVE PULMONARY DISEASE
     Dosage: 2 PUFFS TWICE
     Route: 055
  2. SYMBICORT [Suspect]
     Indication: EMPHYSEMA
     Dosage: 2 PUFFS TWICE
     Route: 055
  3. OXYGEN [Concomitant]
  4. SPIRIVA [Concomitant]
  5. VENTOLIN HFA [Concomitant]
  6. OXYCODONE HCL [Concomitant]
     Dosage: 10/325 MG EVERY 2-4 HOURS
  7. XANAX [Concomitant]
  8. LASIX [Concomitant]
  9. POTASSIUM [Concomitant]
  10. PROTONIX [Concomitant]
  11. MEGESTROL [Concomitant]
  12. WARFARIN SODIUM [Concomitant]
  13. ESTROGEN [Concomitant]
  14. GLYCOPYRROLATE [Concomitant]

REACTIONS (3)
  - HEADACHE [None]
  - INCORRECT DOSE ADMINISTERED [None]
  - PYREXIA [None]
